FAERS Safety Report 23965067 (Version 1)
Quarter: 2024Q2

REPORT INFORMATION
  Report Type: Spontaneous
  Country: US (occurrence: US)
  Receive Date: 20240612
  Receipt Date: 20240612
  Transmission Date: 20240716
  Serious: No
  Sender: FDA-Public Use
  Company Number: US-APOTEX-2023AP015976

PATIENT
  Sex: Female

DRUGS (2)
  1. OFLOXACIN OTIC [Suspect]
     Active Substance: OFLOXACIN
     Indication: Product used for unknown indication
     Dosage: 10 DOSAGE FORM, BID
     Route: 001
     Dates: start: 20230916, end: 20230920
  2. OFLOXACIN OTIC [Suspect]
     Active Substance: OFLOXACIN
     Dosage: 10 DOSAGE FORM, BID
     Route: 001
     Dates: start: 20230916, end: 20230920

REACTIONS (2)
  - Product dose omission issue [Unknown]
  - Product packaging quantity issue [Unknown]

NARRATIVE: CASE EVENT DATE: 20230901
